FAERS Safety Report 7755483-6 (Version None)
Quarter: 2011Q3

REPORT INFORMATION
  Report Type: 
  Country: None (occurrence: None)
  Receive Date: 20110916
  Receipt Date: 20110912
  Transmission Date: 20111222
  Serious: Yes (Other)
  Sender: FDA-Public Use
  Company Number: US-PFIZER INC-2011204274

PATIENT
  Sex: Female
  Weight: 90.703 kg

DRUGS (8)
  1. LYRICA [Suspect]
     Dosage: 75 MG, 3X/DAY
     Dates: start: 20110101
  2. OXYCONTIN [Concomitant]
     Dosage: UNK
  3. ZETIA [Concomitant]
     Indication: BLOOD CHOLESTEROL INCREASED
     Dosage: UNK
  4. LYRICA [Suspect]
     Dosage: 100 MG, 3X/DAY
     Route: 048
     Dates: start: 20110101
  5. VICODIN [Concomitant]
     Dosage: UNK
  6. LASIX [Concomitant]
     Indication: LYMPHOEDEMA
     Dosage: 40 MG, 2X/DAY
  7. LYRICA [Suspect]
     Indication: PAIN IN EXTREMITY
     Dosage: 25 MG, 3X/DAY
     Route: 048
     Dates: start: 20110715
  8. XANAX [Concomitant]
     Dosage: UNK

REACTIONS (3)
  - PAIN IN EXTREMITY [None]
  - NEURALGIA [None]
  - LYMPHOEDEMA [None]
